FAERS Safety Report 8464418-2 (Version None)
Quarter: 2012Q2

REPORT INFORMATION
  Report Type: 
  Country: None (occurrence: None)
  Receive Date: 20120626
  Receipt Date: 20120608
  Transmission Date: 20120825
  Serious: Yes (Hospitalization)
  Sender: FDA-Public Use
  Company Number: US-BIOGENIDEC-2012BI019378

PATIENT
  Sex: Male

DRUGS (6)
  1. CELEBREX [Concomitant]
     Indication: MUSCULOSKELETAL PAIN
     Route: 048
  2. ERGOCALCIFEROL [Concomitant]
     Route: 048
  3. CLONAZEPAM [Concomitant]
     Route: 048
  4. MECLIZINE [Concomitant]
     Route: 048
  5. REGLAN [Concomitant]
     Route: 048
  6. TYSABRI [Suspect]
     Indication: MULTIPLE SCLEROSIS
     Route: 042
     Dates: start: 20071221, end: 20120427

REACTIONS (1)
  - PROGRESSIVE MULTIFOCAL LEUKOENCEPHALOPATHY [None]
